FAERS Safety Report 9127865 (Version 1)
Quarter: 2013Q1

REPORT INFORMATION
  Report Type: Report from Study
  Country: GB (occurrence: GB)
  Receive Date: 20130228
  Receipt Date: 20130228
  Transmission Date: 20140127
  Serious: Yes (Hospitalization)
  Sender: FDA-Public Use
  Company Number: GB-JNJFOC-20130214324

PATIENT
  Age: 76 Year
  Sex: Female
  Weight: 63.3 kg

DRUGS (5)
  1. STELARA [Suspect]
     Indication: PSORIASIS
     Route: 058
     Dates: start: 20120121
  2. ASPIRIN [Concomitant]
     Dates: start: 20101018
  3. SIMVASTATIN [Concomitant]
     Dates: start: 20101018
  4. LEVOFLOXACIN [Concomitant]
     Dates: start: 20010115
  5. EUCERIN [Concomitant]
     Dates: start: 20110503

REACTIONS (1)
  - Convulsion [Recovered/Resolved]
